FAERS Safety Report 12636286 (Version 2)
Quarter: 2016Q3

REPORT INFORMATION
  Report Type: Spontaneous
  Country: JP (occurrence: JP)
  Receive Date: 20160809
  Receipt Date: 20160902
  Transmission Date: 20161109
  Serious: No
  Sender: FDA-Public Use
  Company Number: JP-009507513-1608JPN003867

PATIENT
  Age: 68 Year
  Sex: Male

DRUGS (3)
  1. MIRTAZAPINE. [Suspect]
     Active Substance: MIRTAZAPINE
     Indication: DEPRESSION
     Dosage: 45 MG, QD
     Route: 048
     Dates: start: 201607
  2. PROPRANOLOL HYDROCHLORIDE. [Concomitant]
     Active Substance: PROPRANOLOL HYDROCHLORIDE
     Indication: PRODUCT USED FOR UNKNOWN INDICATION
     Dosage: 270 MG, QD
     Route: 048
     Dates: start: 201607
  3. VENLAFAXINE HYDROCHLORIDE. [Concomitant]
     Active Substance: VENLAFAXINE HYDROCHLORIDE
     Indication: PRODUCT USED FOR UNKNOWN INDICATION
     Dosage: 225 MG, QD
     Route: 048

REACTIONS (1)
  - Extrasystoles [Recovering/Resolving]

NARRATIVE: CASE EVENT DATE: 20160801
